FAERS Safety Report 25565390 (Version 1)
Quarter: 2025Q3

REPORT INFORMATION
  Report Type: Report from Study
  Country: CN (occurrence: CN)
  Receive Date: 20250716
  Receipt Date: 20250716
  Transmission Date: 20251021
  Serious: Yes (Other)
  Sender: UCB
  Company Number: CN-UCBSA-2025039494

PATIENT
  Age: 8 Month
  Sex: Female

DRUGS (8)
  1. LEVETIRACETAM [Suspect]
     Active Substance: LEVETIRACETAM
     Indication: Generalised tonic-clonic seizure
  2. LEVETIRACETAM [Suspect]
     Active Substance: LEVETIRACETAM
     Indication: Partial seizures
  3. VALPROIC ACID [Concomitant]
     Active Substance: VALPROIC ACID
     Indication: Generalised tonic-clonic seizure
  4. VALPROIC ACID [Concomitant]
     Active Substance: VALPROIC ACID
     Indication: Partial seizures
  5. CLONAZEPAM [Concomitant]
     Active Substance: CLONAZEPAM
     Indication: Generalised tonic-clonic seizure
  6. CLONAZEPAM [Concomitant]
     Active Substance: CLONAZEPAM
     Indication: Partial seizures
  7. TOPIRAMATE [Concomitant]
     Active Substance: TOPIRAMATE
     Indication: Generalised tonic-clonic seizure
  8. TOPIRAMATE [Concomitant]
     Active Substance: TOPIRAMATE
     Indication: Partial seizures

REACTIONS (3)
  - Intellectual disability [Unknown]
  - Drug ineffective [Unknown]
  - Off label use [Unknown]
